FAERS Safety Report 7932009-5 (Version None)
Quarter: 2011Q4

REPORT INFORMATION
  Report Type: 
  Country: None (occurrence: None)
  Receive Date: 20111121
  Receipt Date: 20111108
  Transmission Date: 20120403
  Serious: Yes (Other)
  Sender: FDA-Public Use
  Company Number: US-ELI_LILLY_AND_COMPANY-US201108001151

PATIENT
  Sex: Female
  Weight: 82 kg

DRUGS (1)
  1. FORTEO [Suspect]
     Indication: OSTEOPOROSIS
     Dosage: 20 UG, QD
     Route: 058
     Dates: start: 20110715, end: 20110831

REACTIONS (7)
  - FATIGUE [None]
  - RASH ERYTHEMATOUS [None]
  - DIZZINESS [None]
  - DIARRHOEA [None]
  - ERYTHEMA [None]
  - KNEE ARTHROPLASTY [None]
  - VERTIGO [None]
